FAERS Safety Report 13533963 (Version 1)
Quarter: 2017Q2

REPORT INFORMATION
  Report Type: Spontaneous
  Country: US (occurrence: US)
  Receive Date: 20170510
  Receipt Date: 20170510
  Transmission Date: 20170830
  Serious: No
  Sender: FDA-Public Use
  Company Number: US-SA-2017SA075755

PATIENT
  Age: 80 Year
  Sex: Female

DRUGS (1)
  1. XYZAL ALLERGY 24HR [Suspect]
     Active Substance: LEVOCETIRIZINE DIHYDROCHLORIDE
     Indication: MULTIPLE ALLERGIES
     Route: 065
     Dates: start: 20170423, end: 20170424

REACTIONS (4)
  - Feeling abnormal [Unknown]
  - Sluggishness [Unknown]
  - Somnolence [Unknown]
  - Product size issue [Unknown]

NARRATIVE: CASE EVENT DATE: 20170424
